FAERS Safety Report 8879722 (Version 1)
Quarter: 2012Q4

REPORT INFORMATION
  Report Type: 
  Country: AT (occurrence: AT)
  Receive Date: 20121101
  Receipt Date: 20121101
  Transmission Date: 20130627
  Serious: Yes (Other)
  Sender: FDA-Public Use
  Company Number: AT-UCBSA-069825

PATIENT
  Age: 84 Year
  Sex: Female
  Weight: 81 kg

DRUGS (1)
  1. KEPPRA [Suspect]
     Indication: PARTIAL SEIZURES
     Dates: start: 201206, end: 201206

REACTIONS (5)
  - Skin exfoliation [Recovered/Resolved]
  - Eye pain [Recovered/Resolved]
  - Erythema [Recovered/Resolved]
  - Eyelid oedema [Recovered/Resolved]
  - Swelling face [Recovered/Resolved]
